FAERS Safety Report 8186931-8 (Version None)
Quarter: 2012Q1

REPORT INFORMATION
  Report Type: 
  Country: None (occurrence: None)
  Receive Date: 20120306
  Receipt Date: 20120305
  Transmission Date: 20120608
  Serious: Yes (Hospitalization)
  Sender: FDA-Public Use
  Company Number: US-PFIZER INC-2012053009

PATIENT
  Sex: Female
  Weight: 48.1 kg

DRUGS (16)
  1. DIGOXIN [Concomitant]
     Indication: CONGESTIVE CARDIOMYOPATHY
     Dosage: UNK
     Route: 048
     Dates: start: 20070314
  2. FUROSEMIDE [Suspect]
     Indication: HYPERTENSION
     Dosage: UNK
     Route: 048
     Dates: start: 20090304
  3. CARVEDILOL [Concomitant]
     Indication: CARDIOMYOPATHY
     Dosage: UNK
     Route: 048
     Dates: start: 20100413
  4. ALBUTEROL [Concomitant]
     Indication: ASTHMA
     Dosage: UNK
     Route: 055
     Dates: start: 20111104
  5. RITONAVIR [Suspect]
     Dosage: 100 MG, 2X/DAY
     Dates: start: 20090901
  6. RALTEGRAVIR [Suspect]
     Dosage: 400 MB, BID
     Dates: start: 20090902
  7. LOSARTAN [Concomitant]
     Indication: HYPERTENSION
     Dosage: UNK
     Route: 048
     Dates: start: 20081222
  8. DARUNAVIR [Suspect]
     Dosage: 600 MG, OD
     Route: 048
     Dates: start: 20090901
  9. TRUVADA [Suspect]
     Dosage: 1 DF, 1X/DAY
     Dates: start: 20110924
  10. SPIRONOLACTONE [Suspect]
     Indication: HYPERTENSION
     Dosage: UNK
     Route: 048
     Dates: start: 20110509
  11. DIGOXIN [Concomitant]
     Indication: CARDIAC FAILURE CONGESTIVE
  12. GLIMEPIRIDE [Concomitant]
     Indication: TYPE 2 DIABETES MELLITUS
     Dosage: UNK
     Route: 048
     Dates: start: 20110603
  13. ACETAMINOPHEN AND HYDROCODONE BITARTRATE [Concomitant]
     Indication: ANALGESIC THERAPY
     Dosage: UNK
     Route: 048
     Dates: start: 20110509
  14. MARAVIROC [Suspect]
     Dosage: 300 MG, 2X/DAY
     Dates: start: 20091228
  15. GUAIFENESIN [Concomitant]
     Indication: ASTHMA
     Dosage: UNK
     Route: 048
     Dates: start: 20111112
  16. FUROSEMIDE [Suspect]
     Indication: CARDIAC FAILURE CHRONIC

REACTIONS (2)
  - CARDIAC FAILURE [None]
  - HYPOTENSION [None]
